FAERS Safety Report 7558757-7 (Version None)
Quarter: 2011Q2

REPORT INFORMATION
  Report Type: 
  Country: None (occurrence: None)
  Receive Date: 20110621
  Receipt Date: 20110614
  Transmission Date: 20111010
  Serious: No
  Sender: FDA-Public Use
  Company Number: US-BIOGENIDEC-2011BI022023

PATIENT
  Age: 54 Year
  Sex: Female

DRUGS (2)
  1. TYSABRI [Suspect]
     Indication: MULTIPLE SCLEROSIS
     Route: 042
     Dates: start: 20101203, end: 20110401
  2. TYSABRI [Suspect]
     Route: 042
     Dates: start: 20070420, end: 20070517

REACTIONS (3)
  - GAIT DISTURBANCE [None]
  - MUSCLE SPASTICITY [None]
  - PAIN [None]
